FAERS Safety Report 21200838 (Version 1)
Quarter: 2022Q3

REPORT INFORMATION
  Report Type: Spontaneous
  Country: US (occurrence: None)
  Receive Date: 20220810
  Receipt Date: 20220810
  Transmission Date: 20221026
  Serious: Yes (Death)
  Sender: FDA-Public Use
  Company Number: None

PATIENT
  Sex: Male

DRUGS (8)
  1. PROMACTA [Suspect]
     Active Substance: ELTROMBOPAG OLAMINE
     Indication: Immune thrombocytopenia
     Dates: start: 20160812
  2. BENICAR HCT [Concomitant]
  3. CLONIDINE TAB [Concomitant]
  4. GABAPENTIN [Concomitant]
     Active Substance: GABAPENTIN
  5. HUMULIN R INJ U-100 [Concomitant]
  6. JARDIANCE TAB [Concomitant]
  7. LANTUS INJ [Concomitant]
  8. NORCO TAB [Concomitant]

REACTIONS (1)
  - Death [None]
